FAERS Safety Report 6006586-8 (Version None)
Quarter: 2008Q4

REPORT INFORMATION
  Report Type: 
  Country: None (occurrence: None)
  Receive Date: 20081217
  Receipt Date: 20081208
  Transmission Date: 20090506
  Serious: Yes (Other)
  Sender: FDA-Public Use
  Company Number: FR-ROCHE-601837

PATIENT
  Age: 13 Year
  Sex: Female

DRUGS (7)
  1. CELLCEPT [Suspect]
     Indication: LUNG TRANSPLANT
     Route: 065
  2. CELLCEPT [Interacting]
     Route: 065
  3. CELLCEPT [Interacting]
     Dosage: ROUTE: ORAL FOR THIS THERAPY
     Route: 065
  4. TACROLIMUS [Interacting]
     Indication: DRUG USE FOR UNKNOWN INDICATION
     Route: 065
  5. ACYCLOVIR [Interacting]
     Indication: DRUG USE FOR UNKNOWN INDICATION
     Route: 065
  6. VFEND [Interacting]
     Indication: DRUG USE FOR UNKNOWN INDICATION
     Route: 065
  7. METHYLPREDNISOLONE 16MG TAB [Concomitant]
     Route: 065

REACTIONS (4)
  - CONVULSION [None]
  - DRUG INTERACTION [None]
  - LIVER DISORDER [None]
  - WRONG TECHNIQUE IN DRUG USAGE PROCESS [None]
